FAERS Safety Report 8781588 (Version 10)
Quarter: 2014Q2

REPORT INFORMATION
  Report Type: Spontaneous
  Country: US (occurrence: US)
  Receive Date: 20120913
  Receipt Date: 20140612
  Transmission Date: 20141212
  Serious: Yes (Hospitalization, Other)
  Sender: FDA-Public Use
  Company Number: US-009507513-1209USA004637

PATIENT
  Sex: Female

DRUGS (6)
  1. FOSAMAX [Suspect]
     Indication: OSTEOPOROSIS
     Dosage: UNK, QW
     Route: 048
  2. FOSAMAX [Suspect]
     Indication: OSTEOPOROSIS PROPHYLAXIS
  3. FOSAMAX [Suspect]
     Indication: OSTEOPOROSIS
     Dosage: UNK, QW
     Route: 048
  4. FOSAMAX [Suspect]
     Indication: OSTEOPOROSIS PROPHYLAXIS
  5. ALENDRONATE SODIUM [Suspect]
     Dosage: 70 MG, QW
     Route: 048
  6. ALENDRONATE SODIUM [Suspect]
     Dosage: 10 MG, QW
     Route: 048

REACTIONS (14)
  - Femur fracture [Unknown]
  - Intramedullary rod insertion [Unknown]
  - Renal failure acute [Unknown]
  - Cardiac pacemaker insertion [Unknown]
  - Haemoglobin decreased [Recovering/Resolving]
  - Low turnover osteopathy [Unknown]
  - Dementia Alzheimer^s type [Unknown]
  - Arthritis [Unknown]
  - Sick sinus syndrome [Unknown]
  - Fall [Unknown]
  - Dehydration [Unknown]
  - Hypothermia [Unknown]
  - Inappropriate schedule of drug administration [Unknown]
  - Asthenia [Unknown]
